FAERS Safety Report 19853483 (Version 3)
Quarter: 2021Q3

REPORT INFORMATION
  Report Type: Report from Study
  Country: MX (occurrence: MX)
  Receive Date: 20210919
  Receipt Date: 20210925
  Transmission Date: 20211014
  Serious: Yes (Death, Other)
  Sender: FDA-Public Use
  Company Number: NVSC2021MX212252

PATIENT
  Sex: Female
  Weight: 68 kg

DRUGS (3)
  1. NORVASC [Concomitant]
     Active Substance: AMLODIPINE BESYLATE
     Indication: HYPERTENSION
     Dosage: 100 MG
     Route: 048
     Dates: end: 2015
  2. GALVUS MET [Suspect]
     Active Substance: METFORMIN HYDROCHLORIDE\VILDAGLIPTIN
     Dosage: UNK
     Route: 048
     Dates: end: 2016
  3. GALVUS MET [Suspect]
     Active Substance: METFORMIN HYDROCHLORIDE\VILDAGLIPTIN
     Indication: DIABETES MELLITUS
     Dosage: UNK
     Route: 048
     Dates: start: 2012

REACTIONS (4)
  - Breast cancer [Fatal]
  - Metastases to liver [Fatal]
  - Metastases to bone [Fatal]
  - Peripheral swelling [Unknown]

NARRATIVE: CASE EVENT DATE: 2014
